FAERS Safety Report 9150931 (Version 1)
Quarter: 2013Q1

REPORT INFORMATION
  Report Type: Spontaneous
  Country: US (occurrence: US)
  Receive Date: 20130308
  Receipt Date: 20130308
  Transmission Date: 20140127
  Serious: No
  Sender: FDA-Public Use
  Company Number: US-GLAXOSMITHKLINE-A0967381A

PATIENT
  Age: 45 Year
  Sex: Female

DRUGS (2)
  1. OLUX E [Suspect]
     Indication: RASH
     Route: 061
     Dates: start: 2009, end: 201202
  2. CONCERTA [Concomitant]

REACTIONS (3)
  - Dry skin [Not Recovered/Not Resolved]
  - Pain [Unknown]
  - Product quality issue [Unknown]
